FAERS Safety Report 10224782 (Version 1)
Quarter: 2014Q2

REPORT INFORMATION
  Report Type: Spontaneous
  Country: US (occurrence: US)
  Receive Date: 20140609
  Receipt Date: 20140609
  Transmission Date: 20141212
  Serious: No
  Sender: FDA-Public Use
  Company Number: US-B.I. PHARMACEUTICALS,INC./RIDGEFIELD-2014-BI-23728BP

PATIENT
  Sex: Male

DRUGS (1)
  1. ATROVENT [Suspect]
     Indication: PNEUMOTHORAX
     Route: 055
     Dates: start: 2014

REACTIONS (2)
  - Off label use [Unknown]
  - Off label use [Unknown]
